FAERS Safety Report 23483630 (Version 8)
Quarter: 2025Q1

REPORT INFORMATION
  Report Type: Spontaneous
  Country: US (occurrence: US)
  Receive Date: 20240205
  Receipt Date: 20250317
  Transmission Date: 20250409
  Serious: No
  Sender: PFIZER
  Company Number: US-PFIZER INC-PV202300172343

PATIENT
  Age: 79 Year
  Sex: Female
  Weight: 50.7 kg

DRUGS (6)
  1. XALKORI [Suspect]
     Active Substance: CRIZOTINIB
     Indication: Anaplastic large cell lymphoma T- and null-cell types
     Dates: start: 202103
  2. XALKORI [Suspect]
     Active Substance: CRIZOTINIB
     Indication: Non-Hodgkin^s lymphoma
     Dosage: 200 MG, 2X/DAY IN THE MORNING AND AT BEDTIME
     Route: 048
     Dates: start: 202103
  3. XALKORI [Suspect]
     Active Substance: CRIZOTINIB
  4. XALKORI [Suspect]
     Active Substance: CRIZOTINIB
     Dosage: 200 MG, TAKE 7 CAPSULES IN AM AND BEDTIME DAILY
     Route: 048
  5. XALKORI [Suspect]
     Active Substance: CRIZOTINIB
     Dosage: 200 MG, 2X/DAY
  6. TRAZODONE [Concomitant]
     Active Substance: TRAZODONE HYDROCHLORIDE
     Indication: Neuropathy peripheral

REACTIONS (6)
  - Brain fog [Unknown]
  - Headache [Unknown]
  - Diarrhoea [Unknown]
  - Off label use [Unknown]
  - Drug effective for unapproved indication [Unknown]
  - Product prescribing error [Unknown]

NARRATIVE: CASE EVENT DATE: 20210301
